FAERS Safety Report 4524982-2 (Version None)
Quarter: 2004Q4

REPORT INFORMATION
  Report Type: 
  Country: None (occurrence: None)
  Receive Date: 20041117
  Receipt Date: 20030627
  Transmission Date: 20050328
  Serious: Yes (Other)
  Sender: FDA-Public Use
  Company Number: C2003-1631.01

PATIENT
  Age: 58 Year
  Sex: Male

DRUGS (7)
  1. CLOZAPINE TABLETS 100 MG MYALN [Suspect]
     Indication: SCHIZOPHRENIA, PARANOID TYPE
     Dosage: 700MG QD, THEN 200MG TID, ORAL
     Route: 048
  2. CLOZAPINE TABLETS 100 MG IVAX [Suspect]
     Indication: SCHIZOPHRENIA, PARANOID TYPE
     Dosage: 700 MG QD, THEN 200MG TID, ORAL
     Route: 048
  3. DIVALPROEX SODIUM [Concomitant]
  4. DOCUSATE SODIUM [Concomitant]
  5. HEPARIN SODIUM [Concomitant]
  6. NICOTINE [Concomitant]
  7. OXYCODONE AND ACETAMINOPHEN [Concomitant]

REACTIONS (1)
  - LEUKOPENIA [None]
